FAERS Safety Report 6348014-9 (Version None)
Quarter: 2009Q3

REPORT INFORMATION
  Report Type: 
  Country: None (occurrence: None)
  Receive Date: 20090910
  Receipt Date: 20090908
  Transmission Date: 20100115
  Serious: Yes (Life-Threatening, Hospitalization)
  Sender: FDA-Public Use
  Company Number: US-WYE-H10884209

PATIENT
  Sex: Female
  Weight: 64.47 kg

DRUGS (6)
  1. PRISTIQ [Suspect]
     Indication: DEPRESSION
     Route: 048
     Dates: start: 20090814
  2. PROMETHAZINE [Suspect]
     Indication: NAUSEA
     Dosage: 25 MG (FREQUENCY UNKNOWN)
     Route: 048
     Dates: start: 20090716
  3. MIDRIN [Concomitant]
     Dosage: UNKNOWN
     Route: 065
  4. THIAMAZOLE [Concomitant]
     Indication: HYPERTHYROIDISM
     Dosage: 10 MG (FREQUENCY UNKNOWN)
     Route: 065
  5. ANTIVERT [Concomitant]
     Dosage: 25 MG (FREQUENCY UNKNOWN)
     Route: 065
  6. AZITHROMYCIN [Concomitant]
     Dosage: UNKNOWN
     Route: 065

REACTIONS (3)
  - INTENTIONAL OVERDOSE [None]
  - SUICIDAL IDEATION [None]
  - SUICIDE ATTEMPT [None]
